FAERS Safety Report 18320440 (Version 1)
Quarter: 2020Q3

REPORT INFORMATION
  Report Type: Spontaneous
  Country: AU (occurrence: AU)
  Receive Date: 20200929
  Receipt Date: 20200929
  Transmission Date: 20201103
  Serious: Yes (Other)
  Sender: FDA-Public Use
  Company Number: AU-UCBSA-2020033155

PATIENT
  Age: 6 Year
  Sex: Male

DRUGS (8)
  1. KEPPRA [Suspect]
     Active Substance: LEVETIRACETAM
     Dosage: DOUBLE DOSE IN ERROR
  2. FRISIUM [Suspect]
     Active Substance: CLOBAZAM
     Dosage: DOUBLE DOSE IN ERROR
  3. EPILIM [Suspect]
     Active Substance: VALPROATE SODIUM
     Dosage: DOUBLE DOSE IN ERROR
  4. TEGRETOL XR [Suspect]
     Active Substance: CARBAMAZEPINE
     Indication: EPILEPSY
     Dosage: 2 X TEGRETOL CR 200MG
  5. EPILIM [Suspect]
     Active Substance: VALPROATE SODIUM
     Indication: EPILEPSY
     Dosage: EPILIM 200MG X 2
  6. FRISIUM [Suspect]
     Active Substance: CLOBAZAM
     Indication: EPILEPSY
     Dosage: 1 X FRISIUM 10MG
  7. TEGRETOL XR [Suspect]
     Active Substance: CARBAMAZEPINE
     Dosage: DOUBLE DOSE IN ERROR
  8. KEPPRA [Suspect]
     Active Substance: LEVETIRACETAM
     Indication: EPILEPSY
     Dosage: 1X 500MG AND 1 X 250 MG

REACTIONS (4)
  - Sedation [Unknown]
  - Product use issue [Unknown]
  - Accidental overdose [Unknown]
  - Somnolence [Unknown]

NARRATIVE: CASE EVENT DATE: 20200405
